FAERS Safety Report 4319090-X (Version None)
Quarter: 2004Q1

REPORT INFORMATION
  Report Type: 
  Country: None (occurrence: None)
  Receive Date: 20040312
  Receipt Date: 20030807
  Transmission Date: 20041129
  Serious: Yes (Other)
  Sender: FDA-Public Use
  Company Number: 03-227-0749

PATIENT
  Age: 81 Year
  Sex: Female

DRUGS (1)
  1. DILTIAZEM HCL INJ. 125 MG/25 ML; BEN VENUE LABS [Suspect]
     Dosage: 125 MG IV X 1
     Dates: start: 20030807

REACTIONS (1)
  - EXTRAVASATION [None]
